FAERS Safety Report 5408315-5 (Version None)
Quarter: 2007Q3

REPORT INFORMATION
  Report Type: 
  Country: None (occurrence: None)
  Receive Date: 20070806
  Receipt Date: 20070806
  Transmission Date: 20080115
  Serious: Yes (Hospitalization)
  Sender: FDA-Public Use
  Company Number: None

PATIENT
  Age: 55 Year
  Sex: Male

DRUGS (1)
  1. CISPLATIN [Suspect]
     Dosage: 220MG ONCE IV
     Route: 042
     Dates: start: 20070504, end: 20070504

REACTIONS (2)
  - HAEMODIALYSIS [None]
  - RENAL FAILURE ACUTE [None]
